FAERS Safety Report 5405316-8 (Version None)
Quarter: 2007Q3

REPORT INFORMATION
  Report Type: 
  Country: None (occurrence: None)
  Receive Date: 20070803
  Receipt Date: 20070726
  Transmission Date: 20080115
  Serious: Yes (Other)
  Sender: FDA-Public Use
  Company Number: B0481867A

PATIENT
  Age: 8 Year
  Sex: Female

DRUGS (1)
  1. CLENIL [Suspect]
     Indication: ASTHMA
     Route: 055
     Dates: start: 20070611, end: 20070615

REACTIONS (4)
  - BRONCHOSPASM [None]
  - COUGH [None]
  - NAUSEA [None]
  - VOMITING [None]
